FAERS Safety Report 8324006 (Version 2)
Quarter: 2013Q1

REPORT INFORMATION
  Report Type: Spontaneous
  Country: US (occurrence: US)
  Receive Date: 20120105
  Receipt Date: 20130103
  Transmission Date: 20140127
  Serious: No
  Sender: FDA-Public Use
  Company Number: US-ABBOTT-11P-163-0880566-00

PATIENT
  Age: 21 Year
  Sex: Female
  Weight: 67.19 kg

DRUGS (1)
  1. SYNTHROID [Suspect]
     Indication: HYPOTHYROIDISM
     Dates: start: 2011, end: 2012

REACTIONS (2)
  - Hypothyroidism [Unknown]
  - Antibody test abnormal [Unknown]
